FAERS Safety Report 7121227-4 (Version None)
Quarter: 2010Q4

REPORT INFORMATION
  Report Type: 
  Country: None (occurrence: None)
  Receive Date: 20101124
  Receipt Date: 20101118
  Transmission Date: 20110411
  Serious: Yes (Hospitalization)
  Sender: FDA-Public Use
  Company Number: FR-JNJFOC-20101002385

PATIENT
  Sex: Male
  Weight: 102 kg

DRUGS (6)
  1. STELARA [Suspect]
     Indication: PSORIASIS
     Route: 058
  2. STELARA [Suspect]
     Route: 058
  3. DEPAKOTE [Concomitant]
  4. TERCIAN [Concomitant]
  5. SOLIAN [Concomitant]
     Route: 065
  6. SERESTA [Concomitant]
     Route: 065

REACTIONS (1)
  - SUICIDE ATTEMPT [None]
